FAERS Safety Report 5627080-X (Version None)
Quarter: 2008Q1

REPORT INFORMATION
  Report Type: 
  Country: None (occurrence: None)
  Receive Date: 20080115
  Receipt Date: 20070823
  Transmission Date: 20080703
  Serious: Yes (Other)
  Sender: FDA-Public Use
  Company Number: 2007070801

PATIENT
  Age: 64 Year
  Sex: Female
  Weight: 77 kg

DRUGS (4)
  1. AROMASIN [Suspect]
     Indication: BREAST CANCER
     Dosage: 25 MG (25 MG),ORAL
     Route: 048
     Dates: start: 20040101
  2. LIPITOR [Concomitant]
  3. LEXAPRO [Concomitant]
  4. AMBIEN [Concomitant]

REACTIONS (1)
  - NEUROPATHY PERIPHERAL [None]
